FAERS Safety Report 6237741-X (Version None)
Quarter: 2009Q2

REPORT INFORMATION
  Report Type: 
  Country: None (occurrence: None)
  Receive Date: 20090618
  Receipt Date: 20090609
  Transmission Date: 20091009
  Serious: Yes (Other)
  Sender: FDA-Public Use
  Company Number: CHPA2009US13381

PATIENT
  Sex: Male

DRUGS (1)
  1. TRIAMINIC THIN STRIPS UNKNOWN (NCH)(UNKNOWN) DISPERSIBLE TABLET [Suspect]
     Dosage: 12 DF, ONCE/SINGLE, ORAL
     Route: 048
     Dates: start: 20090609, end: 20090609

REACTIONS (2)
  - CONVULSION [None]
  - LOSS OF CONSCIOUSNESS [None]
